FAERS Safety Report 7511885-4 (Version None)
Quarter: 2011Q2

REPORT INFORMATION
  Report Type: 
  Country: None (occurrence: None)
  Receive Date: 20110531
  Receipt Date: 20110526
  Transmission Date: 20111010
  Serious: Yes (Other)
  Sender: FDA-Public Use
  Company Number: US-PFIZER INC-2011111840

PATIENT
  Sex: Female

DRUGS (6)
  1. LISINOPRIL [Concomitant]
     Indication: HYPERTENSION
     Dosage: 20 MG, DAILY
     Route: 048
  2. CHANTIX [Suspect]
     Indication: SMOKING CESSATION THERAPY
     Dosage: 0.5 MG, 1X/DAY
     Route: 048
     Dates: start: 20110506
  3. XANAX [Concomitant]
     Indication: ANXIETY
     Dosage: 1 MG, DAILY
     Route: 048
  4. CHANTIX [Suspect]
     Dosage: 0.5 MG, 2X/DAY
     Route: 048
     Dates: start: 20110501
  5. CELEXA [Concomitant]
     Indication: DEPRESSION
     Dosage: 40 MG, DAILY
     Route: 048
  6. DEXLANSOPRAZOLE [Concomitant]
     Indication: DYSPEPSIA
     Dosage: 60 MG, DAILY
     Route: 048

REACTIONS (2)
  - RASH MACULAR [None]
  - EYE SWELLING [None]
